FAERS Safety Report 5494456-3 (Version None)
Quarter: 2007Q4

REPORT INFORMATION
  Report Type: 
  Country: None (occurrence: None)
  Receive Date: 20071022
  Receipt Date: 20070928
  Transmission Date: 20080405
  Serious: Yes (Death)
  Sender: FDA-Public Use
  Company Number: 100#03#2007-03882

PATIENT
  Age: 37 Year
  Sex: Male

DRUGS (4)
  1. TRAMADOL HCL [Suspect]
     Indication: PAIN IN EXTREMITY
     Route: 048
     Dates: start: 20070518, end: 20070519
  2. AMITRIPTLINE HCL [Suspect]
     Indication: DEPRESSION
     Dosage: 3 DF (1/1 DAY)
     Dates: start: 20060512, end: 20070519
  3. DICLOFENAC SODIUM [Suspect]
     Indication: PAIN IN EXTREMITY
     Dosage: 1DF TWICE DAILY
     Route: 048
     Dates: start: 20070518, end: 20070519
  4. DULOXETINE (DULOXETINE) [Suspect]
     Indication: DEPRESSION
     Dosage: 1DF (1/1 DAYS)
     Dates: start: 20070404, end: 20070519

REACTIONS (1)
  - SUDDEN DEATH [None]
